FAERS Safety Report 23430702 (Version 13)
Quarter: 2025Q1

REPORT INFORMATION
  Report Type: Report from Study
  Country: US (occurrence: US)
  Receive Date: 20240123
  Receipt Date: 20250116
  Transmission Date: 20250409
  Serious: Yes (Other)
  Sender: SANOFI AVENTIS
  Company Number: US-SA-SAC20240117000587

PATIENT
  Age: 27 Year
  Sex: Female

DRUGS (2)
  1. AGALSIDASE BETA [Suspect]
     Active Substance: AGALSIDASE BETA
     Indication: Fabry^s disease
     Dosage: 70 (UNIT NOT PROVIDED), QOW
     Route: 042
     Dates: start: 20240116, end: 20240312
  2. AGALSIDASE BETA [Suspect]
     Active Substance: AGALSIDASE BETA
     Dosage: 70 (UNIT NOT PROVIDED), QOW
     Route: 042
     Dates: start: 2024

REACTIONS (29)
  - Seizure [Recovering/Resolving]
  - Anxiety [Not Recovered/Not Resolved]
  - Arnold-Chiari malformation [Not Recovered/Not Resolved]
  - Abdominal pain [Recovering/Resolving]
  - Nausea [Not Recovered/Not Resolved]
  - Vomiting [Recovering/Resolving]
  - Urinary tract infection [Not Recovered/Not Resolved]
  - Vaginal haemorrhage [Not Recovered/Not Resolved]
  - Influenza [Not Recovered/Not Resolved]
  - Hypotension [Recovering/Resolving]
  - Postoperative wound infection [Recovering/Resolving]
  - Ligament sprain [Recovering/Resolving]
  - Memory impairment [Recovering/Resolving]
  - Catheter site pain [Not Recovered/Not Resolved]
  - Fall [Unknown]
  - Fatigue [Recovered/Resolved]
  - Dyspnoea [Recovering/Resolving]
  - Chest discomfort [Recovering/Resolving]
  - Asthenia [Recovering/Resolving]
  - Vomiting [Not Recovered/Not Resolved]
  - Chest pain [Not Recovered/Not Resolved]
  - Maternal exposure during pregnancy [Unknown]
  - Maternal exposure during breast feeding [Unknown]
  - Malaise [Not Recovered/Not Resolved]
  - Burning sensation [Recovering/Resolving]
  - Dizziness [Recovering/Resolving]
  - Arthralgia [Recovering/Resolving]
  - Back pain [Recovering/Resolving]
  - Body temperature increased [Recovering/Resolving]

NARRATIVE: CASE EVENT DATE: 20240101
